FAERS Safety Report 21918619 (Version 1)
Quarter: 2023Q1

REPORT INFORMATION
  Report Type: Spontaneous
  Country: CN (occurrence: CN)
  Receive Date: 20230127
  Receipt Date: 20230127
  Transmission Date: 20230417
  Serious: Yes (Hospitalization, Other)
  Sender: FDA-Public Use
  Company Number: None

PATIENT
  Age: 62 Year
  Sex: Female
  Weight: 62 kg

DRUGS (6)
  1. CYCLOPHOSPHAMIDE [Suspect]
     Active Substance: CYCLOPHOSPHAMIDE
     Indication: Breast cancer female
     Dosage: 1000 MG, QD, DILUTED WITH 50 ML OF 0.9% SODIUM CHLORIDE, MICRO-PUMP INJECTION, Q3W
     Route: 041
     Dates: start: 20221220, end: 20221220
  2. SODIUM CHLORIDE [Suspect]
     Active Substance: SODIUM CHLORIDE
     Indication: Medication dilution
     Dosage: 50 ML, QD, CONCENTRATION OF 0.9%, USED TO DILUTE 1000 MG CYCLOPHOSPHAMIDE, MICRO-PUMP INJECTION, Q3W
     Route: 041
     Dates: start: 20221220, end: 20221220
  3. DEXTROSE [Suspect]
     Active Substance: DEXTROSE
     Indication: Medication dilution
     Dosage: 150 ML, QD, CONCENTRATION OF 5%, USED TO DILUTE 20 MG DOXORUBICIN HYDROCHLORIDE LIPOSOME, Q3W
     Route: 041
     Dates: start: 20221220, end: 20221220
  4. DEXTROSE [Suspect]
     Active Substance: DEXTROSE
     Dosage: 250 ML, QD, USED TO DILUTE 30 MG DOXORUBICIN HYDROCHLORIDE LIPOSOME, Q3W
     Route: 041
     Dates: start: 20221220, end: 20221220
  5. DOXORUBICIN HYDROCHLORIDE [Suspect]
     Active Substance: DOXORUBICIN HYDROCHLORIDE
     Indication: Breast cancer female
     Dosage: 20 MG, QD, DILUTED WITH 150 ML OF 5 % GLUCOSE, Q3W
     Route: 041
     Dates: start: 20221220, end: 20221220
  6. DOXORUBICIN HYDROCHLORIDE [Suspect]
     Active Substance: DOXORUBICIN HYDROCHLORIDE
     Dosage: 30 MG, QD, DILUTED WITH 250 ML OF 5 % GLUCOSE, Q3W
     Route: 041
     Dates: start: 20221220, end: 20221220

REACTIONS (1)
  - Myelosuppression [Recovering/Resolving]

NARRATIVE: CASE EVENT DATE: 20230106
